FAERS Safety Report 17885391 (Version 4)
Quarter: 2020Q3

REPORT INFORMATION
  Report Type: Spontaneous
  Country: SK (occurrence: SK)
  Receive Date: 20200611
  Receipt Date: 20200714
  Transmission Date: 20201103
  Serious: Yes (Hospitalization)
  Sender: FDA-Public Use
  Company Number: SK-OTSUKA-2020_013960

PATIENT
  Age: 19 Year
  Sex: Female
  Weight: 105 kg

DRUGS (8)
  1. RISPERIDON [Suspect]
     Active Substance: RISPERIDONE
     Indication: PSYCHOTIC DISORDER
     Dosage: UNK
     Route: 065
  2. ARIPIPRAZOLE. [Suspect]
     Active Substance: ARIPIPRAZOLE
     Indication: NARCOLEPSY
     Dosage: UNK
     Route: 065
  3. ABILIFY [Suspect]
     Active Substance: ARIPIPRAZOLE
     Indication: PRODUCT USED FOR UNKNOWN INDICATION
     Dosage: 10 MG, QD
     Route: 065
  4. SERTRALINE [Suspect]
     Active Substance: SERTRALINE HYDROCHLORIDE
     Indication: PRODUCT USED FOR UNKNOWN INDICATION
     Dosage: 15 MG, UNK
     Route: 065
  5. ARIPIPRAZOLE. [Suspect]
     Active Substance: ARIPIPRAZOLE
     Indication: PSYCHOTIC DISORDER
     Dosage: 15 MG, UNK
     Route: 065
  6. RISPERIDON [Suspect]
     Active Substance: RISPERIDONE
     Indication: NARCOLEPSY
  7. FEVARIN [Suspect]
     Active Substance: FLUVOXAMINE MALEATE
     Indication: NARCOLEPSY
     Dosage: 25 MG, UNK
     Route: 065
  8. TIAPRIDAL [Suspect]
     Active Substance: TIAPRIDE HYDROCHLORIDE
     Indication: NARCOLEPSY
     Dosage: UNK
     Route: 065

REACTIONS (8)
  - Hypnagogic hallucination [Unknown]
  - Psychotic disorder [Not Recovered/Not Resolved]
  - Somnolence [Unknown]
  - Irritability [Unknown]
  - Abnormal dreams [Unknown]
  - Weight increased [Unknown]
  - Sleep-related eating disorder [Unknown]
  - Product use in unapproved indication [Unknown]

NARRATIVE: CASE EVENT DATE: 2015
